FAERS Safety Report 17536438 (Version 1)
Quarter: 2020Q1

REPORT INFORMATION
  Report Type: Spontaneous
  Country: US (occurrence: US)
  Receive Date: 20200313
  Receipt Date: 20200313
  Transmission Date: 20200409
  Serious: No
  Sender: FDA-Public Use
  Company Number: US-GW PHARMA-202003USGW00914

PATIENT

DRUGS (3)
  1. EPIDIOLEX [Suspect]
     Active Substance: CANNABIDIOL
     Dosage: 750 MILLIGRAM, QD (1.5 MG IN AM AND 600 MG AT BEDTIME)
     Route: 048
     Dates: start: 20200218
  2. ONFI [Concomitant]
     Active Substance: CLOBAZAM
     Indication: PRODUCT USED FOR UNKNOWN INDICATION
     Dosage: 3 MILLILITER, BID
     Route: 048
  3. EPIDIOLEX [Suspect]
     Active Substance: CANNABIDIOL
     Indication: LENNOX-GASTAUT SYNDROME
     Dosage: 270 MILLIGRAM, BID
     Route: 048
     Dates: start: 20190420, end: 202002

REACTIONS (2)
  - Seizure [Unknown]
  - Insurance issue [Unknown]

NARRATIVE: CASE EVENT DATE: 20200115
